FAERS Safety Report 22088118 (Version 1)
Quarter: 2023Q1

REPORT INFORMATION
  Report Type: Spontaneous
  Country: SE (occurrence: SE)
  Receive Date: 20230313
  Receipt Date: 20230313
  Transmission Date: 20230418
  Serious: Yes (Hospitalization)
  Sender: FDA-Public Use
  Company Number: None

PATIENT
  Sex: Female

DRUGS (6)
  1. VENLAFAXINE [Suspect]
     Active Substance: VENLAFAXINE HYDROCHLORIDE
     Indication: Product used for unknown indication
     Dosage: UNCLEAR AMOUNT (UNIT DOSE: 1, UNIT: UNKNOWN)
     Route: 048
     Dates: start: 20220303, end: 20220303
  2. METOPROLOL [Suspect]
     Active Substance: METOPROLOL
     Indication: Product used for unknown indication
     Dosage: UNCLEAR AMOUNT (UNIT DOSE: 1, UNIT: UNKNOWN)
     Route: 048
     Dates: start: 20220303, end: 20220303
  3. METHYLENE BLUE [Suspect]
     Active Substance: METHYLENE BLUE
     Indication: Product used for unknown indication
     Dosage: UNCLEAR AMOUNT (UNIT DOSE: 1, UNIT: UNKNOWN)
     Route: 065
     Dates: start: 20220303, end: 20220303
  4. PROMETHAZINE HYDROCHLORIDE [Suspect]
     Active Substance: PROMETHAZINE HYDROCHLORIDE
     Indication: Product used for unknown indication
     Dosage: UNCLEAR AMOUNT (UNIT DOSE: 1, UNIT: UNKNOWN)
     Route: 048
     Dates: start: 20220303, end: 20220303
  5. AMLODIPINE [Suspect]
     Active Substance: AMLODIPINE BESYLATE
     Indication: Product used for unknown indication
     Dosage: UNCLEAR AMOUNT (UNIT DOSE: 1, UNIT: UNKNOWN)
     Route: 048
     Dates: start: 20220303, end: 20220303
  6. LAMOTRIGINE [Suspect]
     Active Substance: LAMOTRIGINE
     Indication: Product used for unknown indication
     Dosage: UNCLEAR AMOUNT (UNIT DOSE: 1, UNIT: UNKNOWN)
     Route: 048
     Dates: start: 20220303, end: 20220303

REACTIONS (13)
  - Vasoplegia syndrome [Unknown]
  - Electrocardiogram QRS complex prolonged [Unknown]
  - Intentional self-injury [Unknown]
  - Cardiac failure [Unknown]
  - Anxiety [Unknown]
  - Bradycardia [Unknown]
  - Cardiac arrest [Unknown]
  - Mydriasis [Unknown]
  - Serotonin syndrome [Unknown]
  - Seizure [Unknown]
  - Blood pressure decreased [Unknown]
  - Muscle twitching [Unknown]
  - Intentional overdose [Unknown]

NARRATIVE: CASE EVENT DATE: 20220303
